FAERS Safety Report 5450236-6 (Version None)
Quarter: 2007Q3

REPORT INFORMATION
  Report Type: 
  Country: None (occurrence: None)
  Receive Date: 20070912
  Receipt Date: 20070905
  Transmission Date: 20080115
  Serious: Yes (Death, Hospitalization)
  Sender: FDA-Public Use
  Company Number: SE-PFIZER INC-2007074147

PATIENT
  Sex: Male

DRUGS (1)
  1. FRAGMIN [Suspect]
     Indication: PULMONARY EMBOLISM
     Dosage: DAILY DOSE:19000I.U.-FREQ:9500 IUX2
     Route: 058

REACTIONS (2)
  - CARDIAC ARREST [None]
  - INTRA-ABDOMINAL HAEMATOMA [None]
